FAERS Safety Report 19036107 (Version 1)
Quarter: 2021Q1

REPORT INFORMATION
  Report Type: Spontaneous
  Country: US (occurrence: US)
  Receive Date: 20210321
  Receipt Date: 20210321
  Transmission Date: 20210420
  Serious: Yes (Disabling, Other)
  Sender: FDA-Public Use
  Company Number: US-TEVA-2021-US-1892444

PATIENT
  Sex: Male

DRUGS (9)
  1. TRAMADOL. [Suspect]
     Active Substance: TRAMADOL
     Route: 065
  2. OXYCODONE [Suspect]
     Active Substance: OXYCODONE
     Route: 065
  3. OXYCONTIN [Suspect]
     Active Substance: OXYCODONE HYDROCHLORIDE
     Route: 065
     Dates: start: 1996
  4. OXYIR [Suspect]
     Active Substance: OXYCODONE HYDROCHLORIDE
     Route: 065
  5. HYDROCODONE AND ACETAMINOPHEN [Suspect]
     Active Substance: ACETAMINOPHEN\HYDROCODONE
     Route: 065
  6. OPANA [Suspect]
     Active Substance: OXYMORPHONE HYDROCHLORIDE
     Route: 065
  7. OXYCODONE AND ACETAMINOPHEN [Suspect]
     Active Substance: ACETAMINOPHEN\OXYCODONE HYDROCHLORIDE
     Route: 065
  8. OXYCODONE [Suspect]
     Active Substance: OXYCODONE
     Route: 065
  9. ROXICODONE [Suspect]
     Active Substance: OXYCODONE HYDROCHLORIDE
     Route: 065

REACTIONS (7)
  - Dependence [Unknown]
  - Anxiety [Unknown]
  - Drug withdrawal syndrome [Unknown]
  - Tooth disorder [Unknown]
  - Depression [Unknown]
  - Blood testosterone decreased [Unknown]
  - Disability [Unknown]
